FAERS Safety Report 11313748 (Version 2)
Quarter: 2019Q3

REPORT INFORMATION
  Report Type: Spontaneous
  Country: US (occurrence: US)
  Receive Date: 20150727
  Receipt Date: 20190725
  Transmission Date: 20191004
  Serious: No
  Sender: FDA-Public Use
  Company Number: US-ABBVIE-15P-163-1405840-00

PATIENT
  Age: 54 Year
  Sex: Female
  Weight: 68.04 kg

DRUGS (4)
  1. CYTOMEL [Suspect]
     Active Substance: LIOTHYRONINE SODIUM
     Route: 065
  2. SYNTHROID [Suspect]
     Active Substance: LEVOTHYROXINE SODIUM
     Indication: PRODUCT USED FOR UNKNOWN INDICATION
     Route: 048
     Dates: start: 1964, end: 1967
  3. CYTOMEL [Suspect]
     Active Substance: LIOTHYRONINE SODIUM
     Dosage: IN 2015
     Route: 065
  4. CYTOMEL [Suspect]
     Active Substance: LIOTHYRONINE SODIUM
     Indication: THYROID FUNCTION TEST ABNORMAL
     Route: 065
     Dates: start: 1970

REACTIONS (10)
  - Fatigue [Unknown]
  - Drug ineffective [Unknown]
  - Asthenia [Unknown]
  - Feeling abnormal [Unknown]
  - Hypothyroidism [Unknown]
  - Speech disorder [Unknown]
  - Chest pain [Unknown]
  - Sudden onset of sleep [Unknown]
  - Bedridden [Unknown]
  - Weight increased [Unknown]

NARRATIVE: CASE EVENT DATE: 1997
